FAERS Safety Report 8287740-1 (Version None)
Quarter: 2012Q2

REPORT INFORMATION
  Report Type: 
  Country: None (occurrence: None)
  Receive Date: 20120416
  Receipt Date: 20120413
  Transmission Date: 20120825
  Serious: Yes (Death)
  Sender: FDA-Public Use
  Company Number: US-PFIZER INC-2012092761

PATIENT

DRUGS (2)
  1. NORVASC [Suspect]
  2. LIPITOR [Suspect]

REACTIONS (1)
  - DEATH [None]
